FAERS Safety Report 7794531-4 (Version None)
Quarter: 2011Q3

REPORT INFORMATION
  Report Type: 
  Country: None (occurrence: None)
  Receive Date: 20110930
  Receipt Date: 20110922
  Transmission Date: 20111222
  Serious: Yes (Hospitalization)
  Sender: FDA-Public Use
  Company Number: 2011SP044618

PATIENT
  Age: 66 Year
  Sex: Male

DRUGS (7)
  1. TEMESTA /00273201/ [Concomitant]
  2. REMERON [Suspect]
     Indication: PRODUCT USED FOR UNKNOWN INDICATION
     Dosage: 30 MG;QD;PO UNKNOWN INDICATION
     Route: 048
     Dates: start: 20110711, end: 20110728
  3. LEVOTHYROXINE SODIUM [Concomitant]
  4. SEROQUEL [Suspect]
     Indication: PRODUCT USED FOR UNKNOWN INDICATION
     Dosage: 37.5 MG;QD;PO
     Route: 048
     Dates: start: 20110726, end: 20110728
  5. CITALOPRAM HYDROBROMIDE [Suspect]
     Indication: PRODUCT USED FOR UNKNOWN INDICATION
     Dosage: 40 MG;QD;PO
     Route: 048
     Dates: start: 20110711, end: 20110728
  6. LOSARTAN POTASSIUM [Concomitant]
  7. PANTOPRAZOLE SODIUM [Concomitant]

REACTIONS (4)
  - CONVULSION [None]
  - ELECTROCARDIOGRAM QT PROLONGED [None]
  - FALL [None]
  - TORSADE DE POINTES [None]
